FAERS Safety Report 6866632-6 (Version None)
Quarter: 2010Q3

REPORT INFORMATION
  Report Type: 
  Country: None (occurrence: None)
  Receive Date: 20100722
  Receipt Date: 20100715
  Transmission Date: 20110219
  Serious: Yes (Other)
  Sender: FDA-Public Use
  Company Number: CZ-AMGEN-QUU424498

PATIENT
  Age: 21 Year
  Sex: Female

DRUGS (1)
  1. NEULASTA [Suspect]
     Indication: PRODUCT USED FOR UNKNOWN INDICATION

REACTIONS (5)
  - BONE PAIN [None]
  - LEUKOCYTOSIS [None]
  - NEUTROPENIA [None]
  - OROPHARYNGEAL PAIN [None]
  - THROMBOCYTOPENIA [None]
